FAERS Safety Report 8520309-X (Version None)
Quarter: 2012Q3

REPORT INFORMATION
  Report Type: 
  Country: None (occurrence: None)
  Receive Date: 20120719
  Receipt Date: 20120711
  Transmission Date: 20120928
  Serious: Yes (Hospitalization)
  Sender: FDA-Public Use
  Company Number: US-US-EMD SERONO, INC.-7029200

PATIENT
  Sex: Male
  Weight: 62 kg

DRUGS (4)
  1. TESTOSTERONE [Concomitant]
     Indication: PRODUCT USED FOR UNKNOWN INDICATION
  2. UNSPECIFIED MEDICATION [Concomitant]
     Indication: PRODUCT USED FOR UNKNOWN INDICATION
  3. VITAMIN B-12 [Concomitant]
     Indication: PRODUCT USED FOR UNKNOWN INDICATION
  4. SEROSTIM [Suspect]
     Indication: HIV WASTING SYNDROME
     Dates: start: 20040101, end: 20110801

REACTIONS (13)
  - RENAL IMPAIRMENT [None]
  - PAIN [None]
  - BONE PAIN [None]
  - FATIGUE [None]
  - CARDIAC FAILURE CONGESTIVE [None]
  - GOUT [None]
  - NEUROPATHY PERIPHERAL [None]
  - AMNESIA [None]
  - ATRIAL FIBRILLATION [None]
  - ATRIAL FLUTTER [None]
  - PERIPHERAL ARTERIAL OCCLUSIVE DISEASE [None]
  - THROMBOSIS [None]
  - INFLUENZA LIKE ILLNESS [None]
